FAERS Safety Report 4354002-4 (Version None)
Quarter: 2004Q2

REPORT INFORMATION
  Report Type: 
  Country: None (occurrence: None)
  Receive Date: 20040506
  Receipt Date: 20040326
  Transmission Date: 20050107
  Serious: No
  Sender: FDA-Public Use
  Company Number: US-GLAXOSMITHKLINE-A0504822A

PATIENT
  Age: 63 Year
  Sex: Female
  Weight: 68.2 kg

DRUGS (7)
  1. AVANDAMET [Suspect]
     Indication: DRUG USE FOR UNKNOWN INDICATION
     Route: 048
     Dates: start: 20040205, end: 20040319
  2. ASPIRIN [Concomitant]
  3. AVAPRO [Concomitant]
  4. CORZIDE [Concomitant]
  5. GLUCOTROL [Concomitant]
  6. NOSPAN [Concomitant]
  7. AVANDIA [Concomitant]
     Indication: DRUG USE FOR UNKNOWN INDICATION

REACTIONS (1)
  - DERMATITIS ALLERGIC [None]
